FAERS Safety Report 17152077 (Version 1)
Quarter: 2019Q4

REPORT INFORMATION
  Report Type: Report from Study
  Country: CA (occurrence: CA)
  Receive Date: 20191213
  Receipt Date: 20191213
  Transmission Date: 20200122
  Serious: Yes (Hospitalization)
  Sender: FDA-Public Use
  Company Number: CA-PFIZER INC-2019533058

PATIENT
  Age: 39 Year
  Sex: Male
  Weight: 105 kg

DRUGS (2)
  1. CLINDAMYCIN. [Suspect]
     Active Substance: CLINDAMYCIN
     Indication: BURN INFECTION
     Dosage: UNK
  2. REMICADE [Suspect]
     Active Substance: INFLIXIMAB
     Indication: COLITIS ULCERATIVE
     Dosage: 500 MG, 1 EVERY 8 WEEK(S)
     Route: 042

REACTIONS (3)
  - Drug hypersensitivity [Recovered/Resolved]
  - Gastric disorder [Recovered/Resolved]
  - Burn infection [Recovered/Resolved]
